FAERS Safety Report 8017537-9 (Version None)
Quarter: 2011Q4

REPORT INFORMATION
  Report Type: 
  Country: None (occurrence: None)
  Receive Date: 20111228
  Receipt Date: 20111228
  Transmission Date: 20120403
  Serious: Yes (Hospitalization)
  Sender: FDA-Public Use
  Company Number: None

PATIENT
  Age: 69 Year
  Sex: Female
  Weight: 60.782 kg

DRUGS (1)
  1. BONIVA [Suspect]
     Indication: OSTEOPOROSIS
     Dosage: 100 MGM Q MONTH PO
     Route: 048
     Dates: start: 20080101, end: 20110101

REACTIONS (2)
  - PATHOLOGICAL FRACTURE [None]
  - OSTEONECROSIS [None]
